FAERS Safety Report 23992502 (Version 1)
Quarter: 2024Q2

REPORT INFORMATION
  Report Type: Spontaneous
  Country: US (occurrence: US)
  Receive Date: 20240620
  Receipt Date: 20240620
  Transmission Date: 20240716
  Serious: No
  Sender: FDA-Public Use
  Company Number: US-ABBVIE-5804525

PATIENT
  Sex: Female
  Weight: 65.77 kg

DRUGS (1)
  1. LUPRON [Suspect]
     Active Substance: LEUPROLIDE ACETATE
     Indication: Breast cancer
     Dosage: UNKNOWN
     Route: 030
     Dates: start: 2022, end: 202403

REACTIONS (4)
  - Cognitive disorder [Recovered/Resolved]
  - Off label use [Not Recovered/Not Resolved]
  - Constipation [Recovering/Resolving]
  - Brain fog [Recovered/Resolved]

NARRATIVE: CASE EVENT DATE: 20220101
